FAERS Safety Report 4571557-5 (Version None)
Quarter: 2005Q1

REPORT INFORMATION
  Report Type: 
  Country: None (occurrence: None)
  Receive Date: 20050207
  Receipt Date: 20041028
  Transmission Date: 20050727
  Serious: Yes (Hospitalization)
  Sender: FDA-Public Use
  Company Number: FR-BRISTOL-MYERS SQUIBB COMPANY-12749024

PATIENT
  Age: 36 Year
  Sex: Female
  Weight: 59 kg

DRUGS (4)
  1. ABILIFY [Suspect]
     Indication: DYSMORPHOPHOBIA
     Dosage: DOSE STOPPED ON 22-OCT-04; DEC TO 7.5 MG/DAY ON 24-OCT-04; INC TO 15 MG/DAY 28-OCT-04.
     Route: 048
     Dates: start: 20041022
  2. NOZINAN [Interacting]
     Route: 048
     Dates: end: 20041022
  3. EFFEXOR [Concomitant]
     Indication: DEPRESSION
     Dates: start: 20040908
  4. CLONAZEPAM [Concomitant]
     Indication: ANXIETY
     Dates: start: 20040902

REACTIONS (3)
  - DRUG INTERACTION [None]
  - HYPERHIDROSIS [None]
  - MALAISE [None]
